FAERS Safety Report 10209791 (Version 1)
Quarter: 2014Q2

REPORT INFORMATION
  Report Type: Spontaneous
  Country: AE (occurrence: AE)
  Receive Date: 20140602
  Receipt Date: 20140602
  Transmission Date: 20141212
  Serious: Yes (Other)
  Sender: FDA-Public Use
  Company Number: PHHY2014AE064234

PATIENT
  Age: 9 Year
  Sex: Female
  Weight: 29.5 kg

DRUGS (4)
  1. EXJADE [Suspect]
     Indication: IRON OVERLOAD
     Dosage: 38 MG/KG/DAY
     Route: 048
  2. EXJADE [Suspect]
     Dosage: UNK UKN, UNK
  3. KCL [Concomitant]
     Dosage: 16 MEQ, TBA BID
  4. SODIUM ACID PHOSPHATE [Concomitant]
     Dosage: 500 MG, DAILY

REACTIONS (3)
  - Hypokalaemia [Recovering/Resolving]
  - Metabolic acidosis [Recovering/Resolving]
  - Hypophosphataemia [Recovering/Resolving]
